FAERS Safety Report 7029120-2 (Version None)
Quarter: 2010Q4

REPORT INFORMATION
  Report Type: 
  Country: None (occurrence: None)
  Receive Date: 20101005
  Receipt Date: 20100930
  Transmission Date: 20110411
  Serious: Yes (Hospitalization)
  Sender: FDA-Public Use
  Company Number: IT-BAYER-201041243GPV

PATIENT
  Age: 78 Year
  Sex: Male

DRUGS (1)
  1. CARDIOASPIRIN [Suspect]
     Indication: PROPHYLAXIS
     Route: 048
     Dates: start: 20080101, end: 20100626

REACTIONS (3)
  - CONFUSIONAL STATE [None]
  - MENTAL IMPAIRMENT [None]
  - SUBDURAL HAEMATOMA [None]
